FAERS Safety Report 15547131 (Version 2)
Quarter: 2018Q4

REPORT INFORMATION
  Report Type: Report from Study
  Country: JP (occurrence: JP)
  Receive Date: 20181024
  Receipt Date: 20181212
  Transmission Date: 20190205
  Serious: Yes (Death, Hospitalization, Other)
  Sender: FDA-Public Use
  Company Number: JP-INCYTE CORPORATION-2015IN003540

PATIENT

DRUGS (12)
  1. RED BLOOD CELLS [Concomitant]
     Active Substance: HUMAN RED BLOOD CELL
     Dosage: 2 IU, QD
     Route: 065
     Dates: start: 20160711
  2. LASTET S [Concomitant]
     Active Substance: ETOPOSIDE
     Indication: MYELOFIBROSIS
     Dosage: 25 MG, QD
     Route: 048
     Dates: start: 20160703, end: 20160703
  3. JAKAVI [Suspect]
     Active Substance: RUXOLITINIB
     Dosage: 5 MG, BID
     Route: 048
     Dates: start: 20150810, end: 20160710
  4. HYDREA [Concomitant]
     Active Substance: HYDROXYUREA
     Indication: MYELOFIBROSIS
     Dosage: 500 MG, QD
     Route: 048
  5. RED BLOOD CELLS [Concomitant]
     Active Substance: HUMAN RED BLOOD CELL
     Indication: MYELOFIBROSIS
     Dosage: 2 IU, QD
     Route: 065
     Dates: start: 20150812, end: 20151127
  6. JAKAVI [Suspect]
     Active Substance: RUXOLITINIB
     Dosage: 10 MG, BID
     Route: 048
     Dates: start: 20150727, end: 20150809
  7. NESP [Concomitant]
     Active Substance: DARBEPOETIN ALFA
     Dosage: 60 UG, QD
     Route: 065
     Dates: end: 20160617
  8. STARASID [Concomitant]
     Active Substance: CYTARABINE OCFOSFATE
     Indication: MYELOFIBROSIS
     Dosage: 100 MG, QD
     Route: 048
     Dates: start: 20160627, end: 20160630
  9. JAKAVI [Suspect]
     Active Substance: RUXOLITINIB
     Indication: MYELOFIBROSIS
     Dosage: 5 MG, BID
     Route: 048
     Dates: start: 20150519, end: 20150726
  10. JAKAVI [Suspect]
     Active Substance: RUXOLITINIB
     Dosage: 5 MG, QD
     Route: 048
     Dates: start: 20160711
  11. PLATELETS [Concomitant]
     Active Substance: HUMAN PLATELET, ALLOGENIC
     Indication: MYELOFIBROSIS
     Dosage: 10 IU, QD
     Route: 065
     Dates: start: 20160711
  12. NESP [Concomitant]
     Active Substance: DARBEPOETIN ALFA
     Indication: RENAL FAILURE
     Dosage: 60 UG, QD
     Route: 065
     Dates: start: 20151127

REACTIONS (12)
  - Cardiac failure [Recovered/Resolved]
  - Cardiomegaly [Unknown]
  - Lymphoma [Unknown]
  - Myelofibrosis [Unknown]
  - Anaemia [Recovered/Resolved]
  - Dyspnoea [Recovering/Resolving]
  - Acute leukaemia [Fatal]
  - Oedema peripheral [Recovered/Resolved]
  - Apathy [Recovering/Resolving]
  - Cardiac dysfunction [Unknown]
  - Cardiac failure [Recovered/Resolved]
  - Feeling abnormal [Unknown]

NARRATIVE: CASE EVENT DATE: 20150601
